FAERS Safety Report 8492650-0 (Version None)
Quarter: 2012Q3

REPORT INFORMATION
  Report Type: 
  Country: None (occurrence: None)
  Receive Date: 20120706
  Receipt Date: 20120702
  Transmission Date: 20120928
  Serious: Yes (Other)
  Sender: FDA-Public Use
  Company Number: US-BAYER-2012-067423

PATIENT
  Age: 62 Year
  Sex: Female

DRUGS (11)
  1. NOVOLOG [Concomitant]
     Indication: DIABETES MELLITUS
     Dosage: UNK UNK, BID
  2. FISH OIL [Concomitant]
     Dosage: UNK
  3. HYDROCHLOROTHIAZIDE [Concomitant]
     Dosage: UNK
  4. ENALAPRIL MALEATE [Concomitant]
     Indication: HYPERTENSION
     Dosage: 0.5 MG, QD
  5. ASCORBIC ACID [Concomitant]
     Dosage: UNK
  6. ALEVE (CAPLET) [Suspect]
     Indication: PAIN
     Dosage: UNK
  7. EMERGEN-C [Suspect]
     Dosage: UNK
     Dates: start: 20120601, end: 20120601
  8. SIMVASTATIN [Concomitant]
     Indication: BLOOD CHOLESTEROL INCREASED
     Dosage: 40 MG, QD
     Route: 048
  9. RANITIDINE [Concomitant]
     Indication: GASTROOESOPHAGEAL REFLUX DISEASE
     Dosage: UNK
  10. LANTUS [Concomitant]
     Indication: DIABETES MELLITUS
     Dosage: 55 U, BID
  11. VITAMIN B-12 [Concomitant]
     Dosage: UNK

REACTIONS (3)
  - ABASIA [None]
  - JOINT SWELLING [None]
  - ARTHRALGIA [None]
